FAERS Safety Report 6447863-6 (Version None)
Quarter: 2009Q4

REPORT INFORMATION
  Report Type: 
  Country: None (occurrence: None)
  Receive Date: 20091120
  Receipt Date: 20091110
  Transmission Date: 20100525
  Serious: Yes (Death)
  Sender: FDA-Public Use
  Company Number: ZA-PFIZER INC-2009287493

PATIENT
  Age: 56 Year
  Sex: Female

DRUGS (6)
  1. VFEND [Suspect]
     Indication: OSTEOMYELITIS FUNGAL
     Dosage: UNK
     Dates: end: 20091021
  2. SOLU-CORTEF [Suspect]
     Dosage: UNK
  3. MAXIPIME [Suspect]
     Dosage: UNK
  4. MERONEM [Suspect]
     Dosage: UNK
  5. NEXIUM [Suspect]
     Dosage: UNK
  6. FLUCONAZOLE [Suspect]
     Dosage: UNK

REACTIONS (2)
  - DISEASE COMPLICATION [None]
  - TREMOR [None]
